FAERS Safety Report 15552423 (Version 1)
Quarter: 2018Q4

REPORT INFORMATION
  Report Type: Spontaneous
  Country: JP (occurrence: JP)
  Receive Date: 20181025
  Receipt Date: 20181025
  Transmission Date: 20190205
  Serious: Yes (Hospitalization, Other)
  Sender: FDA-Public Use
  Company Number: JP-SHIRE-JP201840852

PATIENT

DRUGS (2)
  1. FOSRENOL [Suspect]
     Active Substance: LANTHANUM CARBONATE
     Indication: HYPERPHOSPHATAEMIA
  2. FOSRENOL [Suspect]
     Active Substance: LANTHANUM CARBONATE
     Indication: RENAL FAILURE
     Dosage: 500 MG, 3X/DAY:TID
     Route: 048

REACTIONS (3)
  - Wrong technique in product usage process [Unknown]
  - Product residue present [Unknown]
  - Cardiac failure [Unknown]

NARRATIVE: CASE EVENT DATE: 2018
